FAERS Safety Report 7012191-7 (Version None)
Quarter: 2010Q3

REPORT INFORMATION
  Report Type: 
  Country: None (occurrence: None)
  Receive Date: 20100922
  Receipt Date: 20100922
  Transmission Date: 20110219
  Serious: Yes (Other)
  Sender: FDA-Public Use
  Company Number: None

PATIENT
  Age: 78 Year
  Sex: Male
  Weight: 75.2971 kg

DRUGS (1)
  1. RAPAFLO [Suspect]
     Indication: HYPERTONIC BLADDER
     Dosage: 1 CAPSULE ONCE A DAY ORAL
     Route: 048
     Dates: start: 20100722

REACTIONS (8)
  - ASTHENIA [None]
  - DIARRHOEA [None]
  - DIZZINESS [None]
  - HEADACHE [None]
  - HEART RATE IRREGULAR [None]
  - INSOMNIA [None]
  - ORTHOSTATIC HYPOTENSION [None]
  - PYREXIA [None]
